FAERS Safety Report 18870453 (Version 1)
Quarter: 2021Q1

REPORT INFORMATION
  Report Type: Spontaneous
  Country: FR (occurrence: FR)
  Receive Date: 20210209
  Receipt Date: 20210209
  Transmission Date: 20210420
  Serious: Yes (Other)
  Sender: FDA-Public Use
  Company Number: FR-PFIZER INC-2021119933

PATIENT
  Age: 72 Year
  Sex: Female
  Weight: 54 kg

DRUGS (2)
  1. ATORVASTATIN CALCIUM. [Suspect]
     Active Substance: ATORVASTATIN CALCIUM
     Indication: ACUTE CORONARY SYNDROME
     Dosage: 80 MG, 1X/DAY
     Route: 048
     Dates: start: 20201213, end: 20210112
  2. EZETIMIBE. [Suspect]
     Active Substance: EZETIMIBE
     Indication: ACUTE CORONARY SYNDROME
     Dosage: 10 MG, 1X/DAY
     Route: 048
     Dates: start: 20201213, end: 20210112

REACTIONS (1)
  - Hepatitis cholestatic [Recovering/Resolving]

NARRATIVE: CASE EVENT DATE: 20210112
